FAERS Safety Report 23219564 (Version 1)
Quarter: 2023Q4

REPORT INFORMATION
  Report Type: Spontaneous
  Country: RU (occurrence: None)
  Receive Date: 20231122
  Receipt Date: 20231122
  Transmission Date: 20240109
  Serious: Yes (Other)
  Sender: FDA-Public Use
  Company Number: 2023A264524

PATIENT
  Sex: Male
  Weight: 19 kg

DRUGS (1)
  1. PULMICORT TURBUHALER [Suspect]
     Active Substance: BUDESONIDE
     Indication: Tracheitis
     Dosage: 1 INHALATION AT THE MORNING AND 1 INHALATION IN THE EVENING
     Route: 055
     Dates: start: 20231113, end: 20231113

REACTIONS (2)
  - Asphyxia [Recovered/Resolved]
  - Dyspnoea [Recovered/Resolved]

NARRATIVE: CASE EVENT DATE: 20231114
